FAERS Safety Report 14667796 (Version 3)
Quarter: 2018Q1

REPORT INFORMATION
  Report Type: Spontaneous
  Country: US (occurrence: US)
  Receive Date: 20180322
  Receipt Date: 20180326
  Transmission Date: 20180509
  Serious: No
  Sender: FDA-Public Use
  Company Number: US-PFIZER INC-2018117770

PATIENT
  Sex: Female

DRUGS (3)
  1. WP THYROID [Concomitant]
     Active Substance: THYROID, PORCINE
     Indication: THYROID THERAPY
     Dosage: 130 UG, DAILY
     Route: 048
  2. CYTOMEL [Concomitant]
     Active Substance: LIOTHYRONINE SODIUM
     Dosage: 25 WITHOUT UNIT
  3. CHANTIX [Suspect]
     Active Substance: VARENICLINE TARTRATE
     Indication: SMOKING CESSATION THERAPY
     Dosage: 0.5 MG, UNK(ONE IN THE MORNING FOR THE FIRST THREE DAYS)
     Dates: start: 20180318

REACTIONS (3)
  - Hypersomnia [Unknown]
  - Fatigue [Unknown]
  - Somnolence [Unknown]

NARRATIVE: CASE EVENT DATE: 20180319
